FAERS Safety Report 8464097-4 (Version None)
Quarter: 2012Q2

REPORT INFORMATION
  Report Type: 
  Country: None (occurrence: None)
  Receive Date: 20120625
  Receipt Date: 20120619
  Transmission Date: 20120825
  Serious: Yes (Other)
  Sender: FDA-Public Use
  Company Number: US-PFIZER INC-2011315033

PATIENT
  Sex: Female
  Weight: 81.633 kg

DRUGS (4)
  1. LIPITOR [Suspect]
     Indication: BLOOD CHOLESTEROL INCREASED
     Dosage: 20 MG DAILY
     Dates: end: 20111227
  2. METFORMIN [Concomitant]
     Indication: DIABETES MELLITUS
     Dosage: 500 MG ONE TABLET IN MORNING AND TWO TABLETS AT NIGHT
  3. CELEBREX [Suspect]
     Indication: ARTHRITIS
     Dosage: 200 MG TWO TIMES A DAY
  4. GLIMEPIRIDE [Concomitant]
     Indication: DIABETES MELLITUS
     Dosage: 2 MG, UNK

REACTIONS (3)
  - MYALGIA [None]
  - LIMB DISCOMFORT [None]
  - INTERVERTEBRAL DISC PROTRUSION [None]
